FAERS Safety Report 18530484 (Version 1)
Quarter: 2020Q4

REPORT INFORMATION
  Report Type: Spontaneous
  Country: IT (occurrence: IT)
  Receive Date: 20201121
  Receipt Date: 20201121
  Transmission Date: 20210114
  Serious: Yes (Other)
  Sender: FDA-Public Use
  Company Number: IT-ACCORD-208800

PATIENT
  Age: 55 Year
  Sex: Male

DRUGS (6)
  1. GRANISETRON [Concomitant]
     Active Substance: GRANISETRON
     Indication: NON-HODGKIN^S LYMPHOMA
     Dates: start: 20180906, end: 20181031
  2. HYDROCORTISONE. [Concomitant]
     Active Substance: HYDROCORTISONE
     Indication: NON-HODGKIN^S LYMPHOMA
     Route: 040
     Dates: start: 20180913, end: 20181030
  3. CHLORPHENAMINE/CHLORPHENAMINE MALEATE/CHLORPHENAMINE RESINATE/CHLORPHENAMINE TANNATE [Concomitant]
     Active Substance: CHLORPHENIRAMINE
     Indication: NON-HODGKIN^S LYMPHOMA
     Route: 042
     Dates: start: 20180913, end: 20181030
  4. BENDAMUSTINE [Suspect]
     Active Substance: BENDAMUSTINE
     Indication: NON-HODGKIN^S LYMPHOMA
     Route: 042
     Dates: start: 20180906, end: 20181031
  5. EVEROLIMUS. [Interacting]
     Active Substance: EVEROLIMUS
     Indication: NON-HODGKIN^S LYMPHOMA
     Route: 042
     Dates: start: 20180913, end: 20181030
  6. RITUXIMAB. [Interacting]
     Active Substance: RITUXIMAB
     Indication: NON-HODGKIN^S LYMPHOMA
     Route: 042
     Dates: start: 20180906

REACTIONS (4)
  - Sepsis [Recovered/Resolved]
  - Hyperthermia [Recovered/Resolved]
  - Drug interaction [Unknown]
  - Infusion related reaction [Recovered/Resolved]

NARRATIVE: CASE EVENT DATE: 20200806
